FAERS Safety Report 12623529 (Version 3)
Quarter: 2016Q4

REPORT INFORMATION
  Report Type: Report from Study
  Country: US (occurrence: US)
  Receive Date: 20160804
  Receipt Date: 20161004
  Transmission Date: 20170207
  Serious: Yes (Hospitalization, Other)
  Sender: FDA-Public Use
  Company Number: US-EXELIXIS-CABO-16006496

PATIENT
  Age: 46 Year
  Sex: Female

DRUGS (2)
  1. COMETRIQ [Suspect]
     Active Substance: CABOZANTINIB S-MALATE
     Dosage: 80 MG, QD
     Route: 048
     Dates: start: 20160815, end: 20160826
  2. COMETRIQ [Suspect]
     Active Substance: CABOZANTINIB S-MALATE
     Indication: THYROID CANCER
     Dosage: 140 MG, QD
     Route: 048
     Dates: start: 20160525, end: 201606

REACTIONS (18)
  - Dysphonia [Not Recovered/Not Resolved]
  - Fatigue [Recovering/Resolving]
  - Decreased appetite [Recovering/Resolving]
  - Hepatic failure [Unknown]
  - Tongue discolouration [Unknown]
  - Dehydration [Unknown]
  - Tongue discomfort [Unknown]
  - Dental prosthesis placement [Unknown]
  - Gallbladder disorder [Unknown]
  - Retching [Unknown]
  - Diarrhoea [Recovering/Resolving]
  - Oral pain [Not Recovered/Not Resolved]
  - Blood pressure increased [Unknown]
  - Stomatitis [Not Recovered/Not Resolved]
  - Pneumonia [Unknown]
  - Pancreatitis [Unknown]
  - Aspiration [Unknown]
  - Asthenia [Recovering/Resolving]

NARRATIVE: CASE EVENT DATE: 201606
